FAERS Safety Report 17529066 (Version 1)
Quarter: 2020Q1

REPORT INFORMATION
  Report Type: Spontaneous
  Country: AU (occurrence: AU)
  Receive Date: 20200311
  Receipt Date: 20200311
  Transmission Date: 20200409
  Serious: Yes (Hospitalization)
  Sender: FDA-Public Use
  Company Number: AU-MYLANLABS-2020M1027471

PATIENT
  Age: 7 Decade
  Sex: Female

DRUGS (3)
  1. PACLITAXEL. [Suspect]
     Active Substance: PACLITAXEL
     Dosage: D8
     Route: 033
     Dates: start: 200708, end: 200712
  2. CISPLATIN. [Suspect]
     Active Substance: CISPLATIN
     Indication: OVARIAN EPITHELIAL CANCER
     Dosage: D2/ SIX CYCLES
     Route: 033
     Dates: start: 200708, end: 200712
  3. PACLITAXEL. [Suspect]
     Active Substance: PACLITAXEL
     Indication: OVARIAN EPITHELIAL CANCER
     Dosage: D1 : SIX CYCLES
     Route: 033
     Dates: start: 200708, end: 200712

REACTIONS (2)
  - Small intestinal obstruction [Recovered/Resolved]
  - Peritoneal fibrosis [Recovered/Resolved]

NARRATIVE: CASE EVENT DATE: 200906
